FAERS Safety Report 8135356-X (Version None)
Quarter: 2012Q1

REPORT INFORMATION
  Report Type: 
  Country: None (occurrence: None)
  Receive Date: 20120214
  Receipt Date: 20120208
  Transmission Date: 20120608
  Serious: Yes (Hospitalization)
  Sender: FDA-Public Use
  Company Number: US-BAYER-2012-013735

PATIENT
  Age: 37 Year
  Sex: Female
  Weight: 66.213 kg

DRUGS (5)
  1. IBUPROFEN [Concomitant]
     Dosage: UNK UNK, PRN
  2. ACETAMINOPHEN [Concomitant]
     Dosage: UNK UNK, PRN
  3. YAZ [Suspect]
  4. ASPIRIN [Concomitant]
     Dosage: UNK UNK, PRN
  5. LEXAPRO [Concomitant]
     Dosage: UNK
     Dates: start: 20061201

REACTIONS (1)
  - DEEP VEIN THROMBOSIS [None]
